FAERS Safety Report 8993227 (Version 1)
Quarter: 2013Q1

REPORT INFORMATION
  Report Type: Spontaneous
  Country: US (occurrence: US)
  Receive Date: 20130102
  Receipt Date: 20130102
  Transmission Date: 20140127
  Serious: Yes (Other)
  Sender: FDA-Public Use
  Company Number: US-PFIZER INC-2012332708

PATIENT
  Sex: Female

DRUGS (1)
  1. NEURONTIN [Suspect]
     Indication: SCIATICA
     Dosage: UNK
     Dates: start: 200212

REACTIONS (2)
  - Fibromyalgia [Unknown]
  - Drug ineffective [Unknown]
